FAERS Safety Report 19476852 (Version 1)
Quarter: 2021Q2

REPORT INFORMATION
  Report Type: Spontaneous
  Country: US (occurrence: US)
  Receive Date: 20210630
  Receipt Date: 20210630
  Transmission Date: 20210717
  Serious: No
  Sender: FDA-Public Use
  Company Number: US-PFIZER INC-2021372919

PATIENT
  Age: 68 Year
  Sex: Female

DRUGS (2)
  1. AMINOPHYLLINE. [Suspect]
     Active Substance: AMINOPHYLLINE
     Dosage: UNK
  2. LEXISCAN [Suspect]
     Active Substance: REGADENOSON
     Dosage: UNK

REACTIONS (3)
  - Inappropriate affect [Unknown]
  - Feeling abnormal [Unknown]
  - Urticaria [Unknown]
